FAERS Safety Report 25312847 (Version 1)
Quarter: 2025Q2

REPORT INFORMATION
  Report Type: Spontaneous
  Country: US (occurrence: None)
  Receive Date: 20250513
  Receipt Date: 20250513
  Transmission Date: 20250716
  Serious: Yes (Other)
  Sender: FDA-CTU
  Company Number: None

PATIENT
  Age: 70 Year
  Sex: Male

DRUGS (1)
  1. SOFOSBUVIR\VELPATASVIR [Suspect]
     Active Substance: SOFOSBUVIR\VELPATASVIR
     Dates: start: 20250210, end: 20250513

REACTIONS (5)
  - Amnesia [None]
  - Insomnia [None]
  - Anxiety [None]
  - Amnesia [None]
  - Therapy cessation [None]

NARRATIVE: CASE EVENT DATE: 20250513
